FAERS Safety Report 8220491-8 (Version None)
Quarter: 2012Q1

REPORT INFORMATION
  Report Type: 
  Country: None (occurrence: None)
  Receive Date: 20120320
  Receipt Date: 20120308
  Transmission Date: 20120608
  Serious: Yes (Hospitalization)
  Sender: FDA-Public Use
  Company Number: US-BAYER-2011-123874

PATIENT
  Age: 22 Year
  Sex: Female
  Weight: 79.55 kg

DRUGS (3)
  1. YAZ [Suspect]
     Indication: CONTRACEPTION
     Dosage: UNK
     Dates: start: 20061107, end: 20100114
  2. PERCOCET [Concomitant]
     Dosage: 5-325 MG; 1 TABLET EVERY 6 HOURS PM
     Route: 048
     Dates: start: 20100518
  3. YAZ [Suspect]
     Indication: HORMONE LEVEL ABNORMAL

REACTIONS (7)
  - ABDOMINAL INFECTION [None]
  - GALLBLADDER DISORDER [None]
  - BACK PAIN [None]
  - WHITE BLOOD CELL COUNT INCREASED [None]
  - CHOLELITHIASIS [None]
  - ABDOMINAL PAIN UPPER [None]
  - CHOLECYSTITIS ACUTE [None]
